FAERS Safety Report 8076497-5 (Version None)
Quarter: 2011Q4

REPORT INFORMATION
  Report Type: 
  Country: None (occurrence: None)
  Receive Date: 20111221
  Receipt Date: 20111003
  Transmission Date: 20120403
  Serious: Yes (Hospitalization)
  Sender: FDA-Public Use
  Company Number: PHHY2011US15063

PATIENT
  Age: 24 Year
  Sex: Female
  Weight: 95.1 kg

DRUGS (20)
  1. AMBIEN [Concomitant]
  2. MORPHINE [Concomitant]
  3. MIRTAZAPINE [Concomitant]
  4. TRIAMCINOLONE E ^LECIVA^ (CHLOROXINE, TRIAMCINOLONE ACETONIDE) [Concomitant]
  5. PROCHLORPERAZINE MALEATE (PROCHLORPERAZINE MALEATE) [Concomitant]
  6. COUMADIN [Concomitant]
  7. SPIRIVA [Concomitant]
  8. LAMOTRIGINE [Concomitant]
  9. SENNA (SENNA, SENNA ALEXANDRINA) [Concomitant]
  10. TRAZODONE HCL [Concomitant]
  11. ALBUTEROL [Concomitant]
  12. FOLIC ACID [Concomitant]
  13. DOXYCYCLINE [Concomitant]
  14. NEXIUM [Concomitant]
  15. DILAUDID [Concomitant]
  16. ONDANSETRON [Concomitant]
  17. EXJADE [Suspect]
     Indication: IRON OVERLOAD
     Dosage: 3000 MG, DAILY, ORAL
     Route: 048
     Dates: start: 20070122, end: 20110301
  18. EXJADE [Suspect]
     Indication: SICKLE CELL ANAEMIA
     Dosage: 3000 MG, DAILY, ORAL
     Route: 048
     Dates: start: 20070122, end: 20110301
  19. CLARITIN [Concomitant]
  20. NICOTINE [Concomitant]

REACTIONS (5)
  - NAUSEA [None]
  - SICKLE CELL ANAEMIA WITH CRISIS [None]
  - GINGIVAL DISORDER [None]
  - INCORRECT DOSE ADMINISTERED [None]
  - PAIN [None]
